FAERS Safety Report 4969099-8 (Version None)
Quarter: 2006Q2

REPORT INFORMATION
  Report Type: 
  Country: None (occurrence: None)
  Receive Date: 20060411
  Receipt Date: 20041119
  Transmission Date: 20061013
  Serious: Yes (Other)
  Sender: FDA-Public Use
  Company Number: US-BRISTOL-MYERS SQUIBB COMPANY-12772620

PATIENT
  Age: 72 Year
  Sex: Female
  Weight: 64 kg

DRUGS (11)
  1. PARAPLATIN [Suspect]
     Indication: OVARIAN CANCER
     Dosage: LOADING DOSE ON 28-OCT-2004
     Route: 042
     Dates: start: 20041118, end: 20041118
  2. TAXOL [Concomitant]
     Indication: OVARIAN CANCER
     Dosage: LOADING DOSE ON 28-OCT-2004
     Route: 042
     Dates: start: 20041118, end: 20041118
  3. KYTRIL [Concomitant]
     Indication: PREMEDICATION
     Dates: start: 20041118, end: 20041118
  4. TAGAMET [Concomitant]
     Indication: PREMEDICATION
     Dates: start: 20041118, end: 20041118
  5. BENADRYL [Concomitant]
     Indication: PREMEDICATION
     Dates: start: 20041118, end: 20041118
  6. DECADRON [Concomitant]
     Indication: PREMEDICATION
     Dates: start: 20041118, end: 20041118
  7. PROZAC [Concomitant]
     Route: 048
  8. TRAZODONE HCL [Concomitant]
     Dosage: BEDTIME
  9. CELEXA [Concomitant]
     Dosage: 1.5 TABLETS DAILY (40 MG)
  10. DECADRON [Concomitant]
     Route: 048
  11. COMPAZINE [Concomitant]

REACTIONS (1)
  - ANAPHYLACTIC REACTION [None]
